FAERS Safety Report 8024160-9 (Version None)
Quarter: 2012Q1

REPORT INFORMATION
  Report Type: 
  Country: None (occurrence: None)
  Receive Date: 20120105
  Receipt Date: 20111229
  Transmission Date: 20120608
  Serious: Yes (Other)
  Sender: FDA-Public Use
  Company Number: CA-PFIZER INC-2011317187

PATIENT
  Age: 68 Year
  Sex: Male

DRUGS (1)
  1. HALOPERIDOL [Suspect]
     Indication: PSYCHOTIC DISORDER
     Dosage: 1 MG, 1X/DAY (HS)
     Route: 048

REACTIONS (2)
  - PSYCHOMOTOR RETARDATION [None]
  - INSOMNIA [None]
